FAERS Safety Report 20999727 (Version 2)
Quarter: 2022Q3

REPORT INFORMATION
  Report Type: Report from Study
  Country: BR (occurrence: BR)
  Receive Date: 20220623
  Receipt Date: 20220920
  Transmission Date: 20221027
  Serious: Yes (Other)
  Sender: FDA-Public Use
  Company Number: BR-NOVARTISPH-NVSC2020BR345229

PATIENT
  Age: 40 Year
  Sex: Male
  Weight: 81 kg

DRUGS (4)
  1. COSENTYX [Suspect]
     Active Substance: SECUKINUMAB
     Indication: Psoriatic arthropathy
     Dosage: 300 MG, QMO (2 PENS, EVERY 30 DAYS)
     Route: 065
     Dates: start: 20200206, end: 202011
  2. COSENTYX [Suspect]
     Active Substance: SECUKINUMAB
     Indication: Psoriasis
     Dosage: 200 MG (2 PENS, EVERY 40 DAYS)
     Route: 065
     Dates: start: 202011
  3. COSENTYX [Suspect]
     Active Substance: SECUKINUMAB
     Dosage: UNK, (STARTED AROUND 2 YEARS OR MORE)
     Route: 065
  4. COSENTYX [Suspect]
     Active Substance: SECUKINUMAB
     Dosage: 300 MG, QMO
     Route: 058
     Dates: end: 202205

REACTIONS (13)
  - Tuberculosis [Unknown]
  - Headache [Unknown]
  - Benign mediastinal neoplasm [Not Recovered/Not Resolved]
  - Pulmonary mass [Not Recovered/Not Resolved]
  - Pain [Not Recovered/Not Resolved]
  - Skin exfoliation [Recovering/Resolving]
  - Hair colour changes [Recovering/Resolving]
  - Rash macular [Recovered/Resolved]
  - Rash macular [Not Recovered/Not Resolved]
  - Underdose [Unknown]
  - Product supply issue [Unknown]
  - Inappropriate schedule of product administration [Not Recovered/Not Resolved]
  - Contraindicated product administered [Unknown]

NARRATIVE: CASE EVENT DATE: 20201101
